FAERS Safety Report 8623203 (Version 3)
Quarter: 2012Q4

REPORT INFORMATION
  Report Type: 
  Country: GB (occurrence: GB)
  Receive Date: 20120620
  Receipt Date: 20120920
  Transmission Date: 20130627
  Serious: Yes (Other)
  Sender: FDA-Public Use
  Company Number: GB-ELI_LILLY_AND_COMPANY-GB201206003145

PATIENT
  Age: 14 None
  Sex: Male
  Weight: 41.5 kg

DRUGS (1)
  1. STRATTERA [Suspect]
     Indication: ATTENTION DEFICIT/HYPERACTIVITY DISORDER
     Dosage: 60 mg, qd
     Route: 048
     Dates: start: 20110914

REACTIONS (4)
  - Benign intracranial hypertension [Not Recovered/Not Resolved]
  - Papilloedema [Not Recovered/Not Resolved]
  - Vomiting [Unknown]
  - Headache [Unknown]
